FAERS Safety Report 4744329-6 (Version None)
Quarter: 2005Q3

REPORT INFORMATION
  Report Type: 
  Country: None (occurrence: None)
  Receive Date: 20050809
  Receipt Date: 20050727
  Transmission Date: 20060218
  Serious: Yes (Hospitalization, Other)
  Sender: FDA-Public Use
  Company Number: L05-USA-02605-01

PATIENT
  Age: 59 Year
  Sex: Female

DRUGS (4)
  1. CARBMAZEPINE (CARBMAZEPINE) [Suspect]
     Indication: CONVULSION
     Dosage: 400 MG QD
  2. CARBAMAZEPINE [Suspect]
     Indication: CONVULSION
     Dosage: 800 MG QD
  3. PHENOBARBITAL TAB [Concomitant]
  4. DIPHENHYLHYDANTOIN [Concomitant]

REACTIONS (8)
  - ANXIETY [None]
  - ATRIOVENTRICULAR BLOCK [None]
  - BRADYCARDIA [None]
  - CONVULSION [None]
  - HYPERHIDROSIS [None]
  - HYPERTENSION [None]
  - NAUSEA [None]
  - VERTIGO [None]
